FAERS Safety Report 22010556 (Version 1)
Quarter: 2023Q1

REPORT INFORMATION
  Report Type: Spontaneous
  Country: US (occurrence: US)
  Receive Date: 20230220
  Receipt Date: 20230220
  Transmission Date: 20230418
  Serious: No
  Sender: FDA-Public Use
  Company Number: US-PERRIGO-22US003047

PATIENT
  Sex: Male
  Weight: 97.506 kg

DRUGS (2)
  1. NAPROXEN SODIUM [Suspect]
     Active Substance: NAPROXEN SODIUM
     Indication: Arthritis
     Dosage: 440 MG, BID
     Route: 048
     Dates: start: 202201, end: 2022
  2. UNSPECIFIED INGREDIENT [Concomitant]
     Active Substance: UNSPECIFIED INGREDIENT
     Indication: Hypertension
     Dosage: UNK
     Route: 065

REACTIONS (3)
  - Throat irritation [Recovered/Resolved]
  - Foreign body in respiratory tract [Recovered/Resolved]
  - Incorrect dose administered [Recovered/Resolved]

NARRATIVE: CASE EVENT DATE: 20220101
